FAERS Safety Report 6812363-8 (Version None)
Quarter: 2010Q2

REPORT INFORMATION
  Report Type: 
  Country: None (occurrence: None)
  Receive Date: 20100628
  Receipt Date: 20100610
  Transmission Date: 20101027
  Serious: Yes (Life-Threatening)
  Sender: FDA-Public Use
  Company Number: DSA_43037_2010

PATIENT
  Age: 68 Year
  Sex: Female

DRUGS (4)
  1. HERBESSER R (HERBESSER R- DILTIAZEM HYDROCHLORIDE) 100 MG (NOT SPECIFI [Suspect]
     Indication: CHEST PAIN
     Dosage: 100 MG QD, NOT THE PRESCRIBED AMOUNT ORAL
     Route: 048
     Dates: end: 20090924
  2. HERBESSER R (HERBESSER R- DILTIAZEM HYDROCHLORIDE) 100 MG (NOT SPECIFI [Suspect]
     Indication: HYPERTENSION
     Dosage: 100 MG QD, NOT THE PRESCRIBED AMOUNT ORAL
     Route: 048
     Dates: end: 20090924
  3. VALSARTAN [Suspect]
     Indication: HYPERTENSION
     Dosage: 80 MG, NOT THE PRESCRIBED AMOUNT ORAL
     Route: 048
  4. BAYSPIRIN [Concomitant]

REACTIONS (13)
  - ALANINE AMINOTRANSFERASE INCREASED [None]
  - ANURIA [None]
  - ASPARTATE AMINOTRANSFERASE INCREASED [None]
  - BUNDLE BRANCH BLOCK RIGHT [None]
  - CARDIO-RESPIRATORY ARREST [None]
  - CONVULSION [None]
  - DEVICE RELATED INFECTION [None]
  - ELECTROCARDIOGRAM ST SEGMENT DEPRESSION [None]
  - FALL [None]
  - HYPOKALAEMIA [None]
  - OVERDOSE [None]
  - SEPSIS [None]
  - SHOCK [None]
